FAERS Safety Report 9618780 (Version 1)
Quarter: 2013Q4

REPORT INFORMATION
  Report Type: Report from Study
  Country: BR (occurrence: BR)
  Receive Date: 20131014
  Receipt Date: 20131014
  Transmission Date: 20140711
  Serious: Yes (Hospitalization, Other)
  Sender: FDA-Public Use
  Company Number: PHHY2013BR114610

PATIENT
  Age: 79 Year
  Sex: Male
  Weight: 70 kg

DRUGS (4)
  1. DIOVAN [Suspect]
     Indication: BLOOD PRESSURE ABNORMAL
     Dosage: 1 DF (80MG), QD
     Dates: start: 201308, end: 201309
  2. DIOVAN [Suspect]
     Dosage: 1 DF (80MG), BID
     Dates: start: 201309, end: 201309
  3. PREDNISONE [Concomitant]
     Dosage: 1 DF, DAILY
     Route: 048
  4. ZOLADEX [Concomitant]
     Indication: PROSTATIC DISORDER
     Dosage: 1 DF, Q3MO
     Route: 058

REACTIONS (9)
  - Pneumonia [Recovered/Resolved]
  - Bronchitis [Recovered/Resolved]
  - Sinusitis [Recovered/Resolved]
  - Influenza [Recovered/Resolved]
  - Fall [Recovered/Resolved]
  - Blood pressure inadequately controlled [Not Recovered/Not Resolved]
  - Gait disturbance [Unknown]
  - Back injury [Unknown]
  - Back pain [Unknown]
